FAERS Safety Report 5707737-2 (Version None)
Quarter: 2008Q2

REPORT INFORMATION
  Report Type: 
  Country: None (occurrence: None)
  Receive Date: 20080417
  Receipt Date: 20080407
  Transmission Date: 20081010
  Serious: Yes (Hospitalization)
  Sender: FDA-Public Use
  Company Number: AU-BAYER-200816432GPV

PATIENT
  Age: 74 Year
  Sex: Female

DRUGS (2)
  1. MIRENA [Suspect]
     Indication: GENITAL HAEMORRHAGE
     Dosage: TOTAL DAILY DOSE: 20 ?G
     Route: 015
     Dates: start: 20070115, end: 20071201
  2. LEVOTHYROXINE SODIUM [Concomitant]
     Indication: DRUG USE FOR UNKNOWN INDICATION
     Route: 048

REACTIONS (2)
  - ENDOMETRIAL CANCER [None]
  - METRORRHAGIA [None]
